FAERS Safety Report 5378927-6 (Version None)
Quarter: 2007Q3

REPORT INFORMATION
  Report Type: 
  Country: None (occurrence: None)
  Receive Date: 20070705
  Receipt Date: 20070209
  Transmission Date: 20080115
  Serious: No
  Sender: FDA-Public Use
  Company Number: A0639025A

PATIENT
  Sex: Female

DRUGS (4)
  1. PARNATE [Suspect]
     Indication: DRUG USE FOR UNKNOWN INDICATION
     Route: 065
  2. KLONOPIN [Concomitant]
  3. LAMICTAL [Concomitant]
  4. AMBIEN [Concomitant]

REACTIONS (1)
  - MUSCLE SPASMS [None]
